FAERS Safety Report 19480614 (Version 3)
Quarter: 2021Q3

REPORT INFORMATION
  Report Type: Spontaneous
  Country: US (occurrence: US)
  Receive Date: 20210701
  Receipt Date: 20210818
  Transmission Date: 20211014
  Serious: Yes (Other)
  Sender: FDA-Public Use
  Company Number: US-ACCORD-208485

PATIENT
  Sex: Female
  Weight: 68.49 kg

DRUGS (5)
  1. NIFEDIPINE. [Concomitant]
     Active Substance: NIFEDIPINE
     Indication: HYPERTENSION
     Dosage: TIME OF EXPOSURE:TRIMESTER 1
     Dates: start: 20201012
  2. HYDROXYCHLOROQUINE [Concomitant]
     Active Substance: HYDROXYCHLOROQUINE
     Indication: SYSTEMIC LUPUS ERYTHEMATOSUS
     Dosage: BD
     Dates: start: 202001
  3. PREDNISOLONE. [Concomitant]
     Active Substance: PREDNISOLONE
     Indication: SYSTEMIC LUPUS ERYTHEMATOSUS
     Dosage: BD
     Dates: start: 202001
  4. MYCOPHENOLIC ACID. [Suspect]
     Active Substance: MYCOPHENOLIC ACID
     Indication: SYSTEMIC LUPUS ERYTHEMATOSUS
     Dosage: TIME OF EXPOSURE: TILL TRIMESTER 1, BD
     Route: 048
     Dates: start: 202001, end: 202009
  5. PLAQUENIL [Concomitant]
     Active Substance: HYDROXYCHLOROQUINE SULFATE
     Indication: SYSTEMIC LUPUS ERYTHEMATOSUS
     Dosage: TIME OF EXPOSURE, TRIMESTER 1
     Dates: start: 202010

REACTIONS (4)
  - Off label use [Unknown]
  - Foetal distress syndrome [Unknown]
  - Prolonged labour [Unknown]
  - Maternal exposure during pregnancy [Unknown]
